FAERS Safety Report 14998485 (Version 1)
Quarter: 2018Q2

REPORT INFORMATION
  Report Type: Report from Study
  Country: None (occurrence: CA)
  Receive Date: 20180612
  Receipt Date: 20180612
  Transmission Date: 20180711
  Serious: Yes (Other)
  Sender: FDA-Public Use
  Company Number: CA-ABBVIE-18K-028-2382257-00

PATIENT
  Sex: Male

DRUGS (1)
  1. HUMIRA [Suspect]
     Active Substance: ADALIMUMAB
     Indication: CROHN^S DISEASE
     Route: 058
     Dates: start: 20101223

REACTIONS (3)
  - Haematochezia [Unknown]
  - Large intestine polyp [Recovering/Resolving]
  - Colitis [Not Recovered/Not Resolved]

NARRATIVE: CASE EVENT DATE: 2018
